FAERS Safety Report 10915729 (Version 3)
Quarter: 2015Q3

REPORT INFORMATION
  Report Type: Spontaneous
  Country: US (occurrence: US)
  Receive Date: 20150316
  Receipt Date: 20150807
  Transmission Date: 20151125
  Serious: No
  Sender: FDA-Public Use
  Company Number: US-JNJFOC-20150220403

PATIENT
  Age: 57 Year
  Sex: Female
  Weight: 99.79 kg

DRUGS (8)
  1. INDERAL [Concomitant]
     Active Substance: PROPRANOLOL HYDROCHLORIDE
     Indication: EXTRAPYRAMIDAL DISORDER
     Route: 065
     Dates: start: 20140715
  2. RISPERDAL CONSTA [Suspect]
     Active Substance: RISPERIDONE
     Indication: DRUG THERAPY
     Route: 030
     Dates: start: 20140513, end: 20140826
  3. GABAPENTIN. [Concomitant]
     Active Substance: GABAPENTIN
     Indication: DRUG THERAPY
     Route: 065
     Dates: start: 20140513
  4. RISPERDAL CONSTA [Suspect]
     Active Substance: RISPERIDONE
     Indication: PSYCHOTIC DISORDER
     Route: 030
     Dates: start: 20140513, end: 20140826
  5. INVEGA SUSTENNA [Suspect]
     Active Substance: PALIPERIDONE PALMITATE
     Indication: PSYCHOTIC DISORDER
     Route: 030
     Dates: start: 20150211
  6. INVEGA SUSTENNA [Suspect]
     Active Substance: PALIPERIDONE PALMITATE
     Indication: PSYCHOTIC DISORDER
     Route: 030
     Dates: start: 201408, end: 20150211
  7. GABAPENTIN. [Concomitant]
     Active Substance: GABAPENTIN
     Indication: ANXIETY
     Route: 065
     Dates: start: 20140513
  8. BENZOTROPINE [Concomitant]
     Active Substance: BENZTROPINE
     Indication: EXTRAPYRAMIDAL DISORDER
     Route: 065
     Dates: start: 20140513

REACTIONS (3)
  - Psychotic disorder [Not Recovered/Not Resolved]
  - Drug ineffective [Not Recovered/Not Resolved]
  - Blood prolactin increased [Recovering/Resolving]

NARRATIVE: CASE EVENT DATE: 2014
